FAERS Safety Report 20808601 (Version 1)
Quarter: 2022Q2

REPORT INFORMATION
  Report Type: Spontaneous
  Country: US (occurrence: None)
  Receive Date: 20220509
  Receipt Date: 20220509
  Transmission Date: 20220721
  Serious: Yes (Hospitalization)
  Sender: FDA-Public Use
  Company Number: None

PATIENT
  Age: 88 Year
  Sex: Male
  Weight: 87 kg

DRUGS (2)
  1. BACLOFEN [Suspect]
     Active Substance: BACLOFEN
     Indication: Toxicity to various agents
     Dosage: FREQUENCY : 3 TIMES A DAY;?
     Route: 048
  2. BACLOFEN [Suspect]
     Active Substance: BACLOFEN
     Indication: Mental status changes

REACTIONS (6)
  - Encephalopathy [None]
  - Parkinsonism [None]
  - Muscle rigidity [None]
  - Lactic acidosis [None]
  - Delirium [None]
  - Product prescribing error [None]

NARRATIVE: CASE EVENT DATE: 20211126
